FAERS Safety Report 15453304 (Version 2)
Quarter: 2018Q4

REPORT INFORMATION
  Report Type: Report from Study
  Country: ES (occurrence: ES)
  Receive Date: 20181001
  Receipt Date: 20181002
  Transmission Date: 20190204
  Serious: Yes (Hospitalization, Other)
  Sender: FDA-Public Use
  Company Number: ES-PFIZER INC-2018389623

PATIENT
  Age: 39 Year
  Sex: Female

DRUGS (3)
  1. GABAPENTIN. [Suspect]
     Active Substance: GABAPENTIN
     Indication: SPINAL PAIN
     Dosage: 300 MG, 2X/DAY (EVERY 12 HOURS)
     Route: 048
     Dates: start: 20160817, end: 20160818
  2. FENTANYL. [Interacting]
     Active Substance: FENTANYL
     Indication: SPINAL PAIN
     Dosage: 50 UG, 1X/DAY
     Route: 062
     Dates: start: 20160817, end: 20160818
  3. DIAZEPAM. [Interacting]
     Active Substance: DIAZEPAM
     Indication: SPINAL PAIN
     Dosage: 5 MG, 1X/DAY
     Route: 048
     Dates: start: 2015

REACTIONS (2)
  - Encephalopathy [Recovered/Resolved]
  - Drug interaction [Unknown]

NARRATIVE: CASE EVENT DATE: 20160818
